FAERS Safety Report 9937632 (Version 2)
Quarter: 2014Q1

REPORT INFORMATION
  Report Type: Spontaneous
  Country: IT (occurrence: IT)
  Receive Date: 20140303
  Receipt Date: 20140306
  Transmission Date: 20141002
  Serious: Yes (Other)
  Sender: FDA-Public Use
  Company Number: IT-MERCK-1402ITA011457

PATIENT
  Age: 48 Year
  Sex: Male
  Weight: 105 kg

DRUGS (3)
  1. PEGINTERFERON ALFA-2B [Suspect]
     Indication: HEPATITIS C
     Dosage: 150 MICROGRAM, QW
     Route: 058
     Dates: start: 20110710, end: 20111002
  2. COPEGUS [Suspect]
     Indication: HEPATITIS C
     Dosage: 1200 MG DAILY
     Route: 048
     Dates: start: 201101, end: 2011
  3. LANSOPRAZOLE [Concomitant]
     Indication: GASTRITIS
     Dosage: TOTAL DAILY DOSE 30 MG
     Route: 048
     Dates: start: 20110110, end: 20120117

REACTIONS (8)
  - Pancytopenia [Recovered/Resolved]
  - Alopecia universalis [Not Recovered/Not Resolved]
  - Red blood cell abnormality [Unknown]
  - Haemoglobin abnormal [Unknown]
  - Haematocrit abnormal [Unknown]
  - Mean cell haemoglobin concentration abnormal [Unknown]
  - Neutrophil count abnormal [Unknown]
  - Lymphocyte count abnormal [Unknown]
